FAERS Safety Report 7995649-3 (Version None)
Quarter: 2011Q4

REPORT INFORMATION
  Report Type: 
  Country: None (occurrence: None)
  Receive Date: 20111220
  Receipt Date: 20110106
  Transmission Date: 20120403
  Serious: No
  Sender: FDA-Public Use
  Company Number: US-MYLANLABS-2011S1000645

PATIENT
  Age: 52 Year
  Sex: Female

DRUGS (1)
  1. SOTRADECOL [Suspect]
     Indication: SPIDER VEIN
     Dates: start: 20101130, end: 20101130

REACTIONS (2)
  - HYPERSENSITIVITY [None]
  - INJECTION SITE ERYTHEMA [None]
